FAERS Safety Report 13581460 (Version 4)
Quarter: 2017Q4

REPORT INFORMATION
  Report Type: Spontaneous
  Country: US (occurrence: US)
  Receive Date: 20170525
  Receipt Date: 20171229
  Transmission Date: 20180320
  Serious: Yes (Hospitalization, Other)
  Sender: FDA-Public Use
  Company Number: US-ASTRAZENECA-2017SE53595

PATIENT
  Age: 12099 Day
  Sex: Female
  Weight: 71.7 kg

DRUGS (11)
  1. PRILOSEC [Suspect]
     Active Substance: OMEPRAZOLE MAGNESIUM
     Indication: GASTRIC PH DECREASED
     Route: 048
     Dates: start: 2014, end: 2016
  2. ALBUTEROL. [Concomitant]
     Active Substance: ALBUTEROL
  3. HYDROCODONE BITARTRATE AND ACETAMINOPHEN [Concomitant]
     Active Substance: ACETAMINOPHEN\HYDROCODONE BITARTRATE
  4. PREDNISONE. [Concomitant]
     Active Substance: PREDNISONE
  5. PRILOSEC OTC [Suspect]
     Active Substance: OMEPRAZOLE MAGNESIUM
     Indication: GASTRIC PH DECREASED
     Route: 048
     Dates: start: 2014, end: 2016
  6. AMLODIPINE [Concomitant]
     Active Substance: AMLODIPINE BESYLATE
  7. CYCLOBENZAPRINE. [Concomitant]
     Active Substance: CYCLOBENZAPRINE
  8. NAPROXEN. [Concomitant]
     Active Substance: NAPROXEN
  9. PRILOSEC [Suspect]
     Active Substance: OMEPRAZOLE MAGNESIUM
     Indication: GASTRIC PH DECREASED
     Route: 048
     Dates: start: 20151208
  10. TRIAMTERENE. [Concomitant]
     Active Substance: TRIAMTERENE
  11. CIPROFLOXACIN. [Concomitant]
     Active Substance: CIPROFLOXACIN

REACTIONS (7)
  - Renal failure [Unknown]
  - Chronic kidney disease [Unknown]
  - Acute kidney injury [Unknown]
  - Renal vein thrombosis [Unknown]
  - Tubulointerstitial nephritis [Unknown]
  - End stage renal disease [Unknown]
  - Haematuria [Unknown]

NARRATIVE: CASE EVENT DATE: 20150815
